FAERS Safety Report 4710338-6 (Version None)
Quarter: 2005Q3

REPORT INFORMATION
  Report Type: 
  Country: None (occurrence: None)
  Receive Date: 20050707
  Receipt Date: 20050628
  Transmission Date: 20060218
  Serious: Yes (Hospitalization)
  Sender: FDA-Public Use
  Company Number: 2002092402CA

PATIENT
  Age: 71 Year
  Sex: Female
  Weight: 48.98 kg

DRUGS (3)
  1. DEPO-MEDROL [Suspect]
     Indication: LUNG DISORDER
     Dosage: INTRAVENOUS; SEE IMAGE
     Route: 042
     Dates: start: 20020204, end: 20020205
  2. DEPO-MEDROL [Suspect]
     Indication: LUNG DISORDER
     Dosage: INTRAVENOUS; SEE IMAGE
     Route: 042
     Dates: start: 20020205, end: 20020205
  3. SOLU-MEDROL [Suspect]
     Dosage: INTRAVENOUS
     Route: 042
     Dates: start: 20020205

REACTIONS (5)
  - DRUG ADMINISTRATION ERROR [None]
  - FATIGUE [None]
  - LUNG DISORDER [None]
  - NAUSEA [None]
  - SOMNOLENCE [None]
